FAERS Safety Report 17761623 (Version 1)
Quarter: 2020Q2

REPORT INFORMATION
  Report Type: Spontaneous
  Country: FR (occurrence: FR)
  Receive Date: 20200508
  Receipt Date: 20200508
  Transmission Date: 20200714
  Serious: Yes (Hospitalization)
  Sender: FDA-Public Use
  Company Number: FR-CADILA HEALTHCARE LIMITED-FR-ZYDUS-023451

PATIENT

DRUGS (6)
  1. SKENAN [Suspect]
     Active Substance: MORPHINE SULFATE
     Indication: INTENTIONAL OVERDOSE
     Dosage: QUANTITY SUPPOSED TO BE INGESTED 1 BOX ()
     Route: 048
     Dates: start: 20170427, end: 20170427
  2. IXPRIM [Suspect]
     Active Substance: ACETAMINOPHEN\TRAMADOL HYDROCHLORIDE
     Indication: INTENTIONAL OVERDOSE
     Dosage: SEVERAL BOXES (UNKNOWN DOSE)
     Route: 048
     Dates: start: 20170427, end: 20170427
  3. ACTISKENAN [Suspect]
     Active Substance: MORPHINE SULFATE
     Indication: INTENTIONAL OVERDOSE
     Dosage: QUANTITY SUPPOSEDLY INGESTED: 1 BOX
     Route: 048
     Dates: start: 20170427, end: 20170427
  4. IMOVANE [Suspect]
     Active Substance: ZOPICLONE
     Indication: INTENTIONAL OVERDOSE
     Dosage: UNKNOWN DOSE
     Route: 048
     Dates: start: 20170427, end: 20170427
  5. ALPRAZOLAM. [Suspect]
     Active Substance: ALPRAZOLAM
     Indication: INTENTIONAL OVERDOSE
     Dosage: UNKNOWN DOSE
     Route: 048
     Dates: start: 20170427, end: 20170427
  6. SERTRALINE [Suspect]
     Active Substance: SERTRALINE HYDROCHLORIDE
     Indication: INTENTIONAL OVERDOSE
     Dosage: UNKNOWN DOSE
     Route: 048
     Dates: start: 20170427, end: 20170427

REACTIONS (5)
  - Coma [Recovered/Resolved]
  - Toxicity to various agents [Recovered/Resolved]
  - Bradypnoea [Recovered/Resolved]
  - Bradycardia [Recovered/Resolved]
  - Hypotension [Recovered/Resolved]

NARRATIVE: CASE EVENT DATE: 20170427
